FAERS Safety Report 10413672 (Version 1)
Quarter: 2014Q3

REPORT INFORMATION
  Report Type: Spontaneous
  Country: RS (occurrence: None)
  Receive Date: 20140825
  Receipt Date: 20140825
  Transmission Date: 20150326
  Serious: Yes (Hospitalization)
  Sender: FDA-Public Use
  Company Number: 9800019SE

PATIENT
  Age: 27 Year
  Sex: Male

DRUGS (3)
  1. HYDROCORTISONE. [Concomitant]
     Active Substance: HYDROCORTISONE
  2. DDAVP [Suspect]
     Active Substance: DESMOPRESSIN ACETATE
     Indication: DIABETES INSIPIDUS
     Route: 045
  3. L-THYROXINE [Concomitant]
     Active Substance: LEVOTHYROXINE

REACTIONS (7)
  - Dehydration [None]
  - Deep vein thrombosis [None]
  - Hyperlipidaemia [None]
  - Hypercoagulation [None]
  - Pulmonary infarction [None]
  - Haemoconcentration [None]
  - Thrombocytopenia [None]
